FAERS Safety Report 6940294-1 (Version None)
Quarter: 2010Q3

REPORT INFORMATION
  Report Type: 
  Country: None (occurrence: None)
  Receive Date: 20100825
  Receipt Date: 20100813
  Transmission Date: 20110219
  Serious: Yes (Other)
  Sender: FDA-Public Use
  Company Number: US-SANOFI-AVENTIS-2010SA048702

PATIENT
  Age: 79 Year
  Sex: Male

DRUGS (14)
  1. PLAVIX [Suspect]
     Route: 048
  2. INVESTIGATIONAL DRUG [Suspect]
     Indication: IDIOPATHIC PULMONARY FIBROSIS
     Route: 048
     Dates: start: 20090213
  3. INVESTIGATIONAL DRUG [Suspect]
     Route: 048
     Dates: start: 20090115
  4. INVESTIGATIONAL DRUG [Suspect]
     Route: 048
     Dates: start: 20090313
  5. INVESTIGATIONAL DRUG [Suspect]
     Route: 048
  6. PREDONINE [Suspect]
     Route: 065
     Dates: start: 20081212
  7. PREDONINE [Suspect]
     Route: 065
     Dates: start: 20081215
  8. PREDONINE [Suspect]
     Route: 065
     Dates: start: 20090109
  9. ASPIRIN [Suspect]
     Route: 065
  10. MICARDIS [Concomitant]
  11. LENDORMIN [Concomitant]
  12. TAKEPRON [Concomitant]
  13. MUCOSOLVAN [Concomitant]
  14. THEO-DUR [Concomitant]

REACTIONS (9)
  - ABDOMINAL PAIN UPPER [None]
  - BRONCHOPULMONARY ASPERGILLOSIS [None]
  - C-REACTIVE PROTEIN INCREASED [None]
  - CHEST DISCOMFORT [None]
  - CONSTIPATION [None]
  - DECREASED APPETITE [None]
  - GASTRITIS EROSIVE [None]
  - HYPOALBUMINAEMIA [None]
  - LYMPHOCYTE COUNT DECREASED [None]
